FAERS Safety Report 15793195 (Version 1)
Quarter: 2019Q1

REPORT INFORMATION
  Report Type: Report from Study
  Country: US (occurrence: US)
  Receive Date: 20190107
  Receipt Date: 20190107
  Transmission Date: 20190417
  Serious: Yes (Other)
  Sender: FDA-Public Use
  Company Number: US-TAKEDA-2019MPI000024

PATIENT

DRUGS (2)
  1. BORTEZOMIB. [Suspect]
     Active Substance: BORTEZOMIB
     Indication: ACUTE MYELOID LEUKAEMIA
     Dosage: 1.3 MG/M2, UNK
     Route: 058
  2. DECITABINE. [Suspect]
     Active Substance: DECITABINE
     Indication: ACUTE MYELOID LEUKAEMIA
     Dosage: 20 MG/M2, UNK
     Route: 042

REACTIONS (3)
  - Febrile neutropenia [Unknown]
  - Haematotoxicity [Unknown]
  - Treatment failure [Unknown]
